APPROVED DRUG PRODUCT: AMANTADINE HYDROCHLORIDE
Active Ingredient: AMANTADINE HYDROCHLORIDE
Strength: 100MG
Dosage Form/Route: TABLET;ORAL
Application: A218598 | Product #001 | TE Code: AB
Applicant: ZHEJIANG JUTAI PHARMACEUTICAL CO LTD
Approved: Sep 26, 2024 | RLD: No | RS: No | Type: RX